FAERS Safety Report 10285921 (Version 1)
Quarter: 2014Q3

REPORT INFORMATION
  Report Type: Spontaneous
  Country: JP (occurrence: JP)
  Receive Date: 20140709
  Receipt Date: 20140709
  Transmission Date: 20150326
  Serious: Yes (Life-Threatening, Other)
  Sender: FDA-Public Use
  Company Number: 2013SP000147

PATIENT
  Age: 47 Year
  Sex: Female

DRUGS (4)
  1. CISPLATIN. [Suspect]
     Active Substance: CISPLATIN
     Indication: CERVIX CARCINOMA STAGE II
     Route: 042
  2. PACLITAXEL. [Suspect]
     Active Substance: PACLITAXEL
     Indication: CERVIX CARCINOMA STAGE II
     Route: 042
  3. PACLITAXEL. [Suspect]
     Active Substance: PACLITAXEL
     Indication: CERVIX CARCINOMA STAGE II
     Route: 042
  4. CISPLATIN. [Suspect]
     Active Substance: CISPLATIN
     Indication: CERVIX CARCINOMA STAGE II
     Route: 042

REACTIONS (14)
  - Cardiac arrest [Unknown]
  - Oesophageal oedema [Recovered/Resolved]
  - Oesophageal ulcer [Recovered/Resolved]
  - Disseminated intravascular coagulation [Recovered/Resolved]
  - Vomiting [Unknown]
  - Septic shock [Unknown]
  - Mediastinal disorder [Recovered/Resolved]
  - Renal failure acute [Unknown]
  - Oesophagitis [Recovered/Resolved]
  - Leukopenia [Recovered/Resolved]
  - Dyspnoea [Unknown]
  - Abdominal pain upper [Unknown]
  - Nausea [Unknown]
  - Cardiovascular insufficiency [Unknown]
